FAERS Safety Report 5085527-4 (Version None)
Quarter: 2006Q3

REPORT INFORMATION
  Report Type: 
  Country: None (occurrence: None)
  Receive Date: 20060822
  Receipt Date: 20060705
  Transmission Date: 20061208
  Serious: Yes (Life-Threatening, Hospitalization, Disabling)
  Sender: FDA-Public Use
  Company Number: PHEH2006US08595

PATIENT
  Age: 2 Year
  Sex: Female
  Weight: 14 kg

DRUGS (3)
  1. TRILEPTAL [Suspect]
     Indication: EPILEPSY
     Dosage: 1050 MG, BID
     Dates: start: 20041004, end: 20060629
  2. SYNTHROID [Concomitant]
     Dosage: 25 MEQ, QD
  3. VASOPRESSIN TANNATE [Concomitant]
     Dosage: 0.04 ML, UNK

REACTIONS (6)
  - CONDITION AGGRAVATED [None]
  - DIABETES INSIPIDUS [None]
  - HYPERNATRAEMIA [None]
  - HYPONATRAEMIA [None]
  - STATUS EPILEPTICUS [None]
  - URINE OUTPUT INCREASED [None]
